FAERS Safety Report 10395793 (Version 1)
Quarter: 2014Q1

REPORT INFORMATION
  Report Type: Spontaneous
  Country: US (occurrence: None)
  Receive Date: 20130724
  Receipt Date: 20130724
  Transmission Date: 20141002
  Serious: Yes (Other)
  Sender: FDA-Public Use
  Company Number: PHEH2012US008778

PATIENT
  Age: 80 Year
  Sex: Female

DRUGS (6)
  1. GLEEVEC (IMATINIB) UNKNOWN [Suspect]
     Indication: CHRONIC MYELOID LEUKAEMIA
     Route: 048
     Dates: start: 20120410
  2. LOSARTAN + HIDROCLOROTIAZIDA (HYDROCHLOROTHIAZIDE, LOSARTAN) [Concomitant]
  3. CLONIDINE [Concomitant]
  4. GABAPENTIN [Concomitant]
  5. HYDROCODONE [Concomitant]
  6. ATORVASTATIN [Concomitant]

REACTIONS (19)
  - Renal failure acute [None]
  - Blood urine present [None]
  - Pyelonephritis [None]
  - Stevens-Johnson syndrome [None]
  - Drug intolerance [None]
  - Hypersomnia [None]
  - Oropharyngeal pain [None]
  - Influenza like illness [None]
  - Vomiting [None]
  - Diarrhoea [None]
  - Rash [None]
  - Dizziness [None]
  - Headache [None]
  - Swelling face [None]
  - Weight increased [None]
  - Pyrexia [None]
  - Abdominal pain upper [None]
  - White blood cell count increased [None]
  - Blood creatinine increased [None]
